FAERS Safety Report 5118606-3 (Version None)
Quarter: 2006Q4

REPORT INFORMATION
  Report Type: 
  Country: None (occurrence: None)
  Receive Date: 20061002
  Receipt Date: 20060926
  Transmission Date: 20070319
  Serious: Yes (Other)
  Sender: FDA-Public Use
  Company Number: US-GLAXOSMITHKLINE-A0621488A

PATIENT
  Sex: Male

DRUGS (3)
  1. SEREVENT [Suspect]
     Indication: ASTHMA
     Route: 055
     Dates: start: 19960101
  2. ALBUTEROL [Suspect]
     Indication: ASTHMA
     Route: 055
  3. UNSPECIFIED MEDICATIONS [Concomitant]

REACTIONS (6)
  - ANOSMIA [None]
  - ASTHMA [None]
  - DRUG INEFFECTIVE [None]
  - NASAL POLYPS [None]
  - NASAL SEPTUM DEVIATION [None]
  - NERVOUSNESS [None]
